FAERS Safety Report 17942429 (Version 1)
Quarter: 2020Q2

REPORT INFORMATION
  Report Type: Spontaneous
  Country: US (occurrence: US)
  Receive Date: 20200625
  Receipt Date: 20200625
  Transmission Date: 20200714
  Serious: No
  Sender: FDA-Public Use
  Company Number: US-LUPIN PHARMACEUTICALS INC.-2020-02169

PATIENT
  Sex: Female

DRUGS (3)
  1. MELATONIN [Concomitant]
     Active Substance: MELATONIN
     Indication: INSOMNIA
     Dosage: UNK, IN NIGHT
     Route: 065
  2. SOLOSEC [Suspect]
     Active Substance: SECNIDAZOLE
     Indication: BACTERIAL VAGINOSIS
     Dosage: UNK, SINGLE, TOOK IT WITH YOGURT AND DID NOT CHEW THE GRANULES
     Route: 048
     Dates: start: 20200311
  3. SOLOSEC [Suspect]
     Active Substance: SECNIDAZOLE
     Dosage: UNK, SINGLE TOOK IT WITH YOGURT AND DID NOT CHEW THE GRANULES
     Route: 048
     Dates: start: 20200423

REACTIONS (1)
  - Bacterial vaginosis [Unknown]

NARRATIVE: CASE EVENT DATE: 2020
